FAERS Safety Report 8791967 (Version 1)
Quarter: 2012Q4

REPORT INFORMATION
  Report Type: 
  Country: US (occurrence: US)
  Receive Date: 20120918
  Receipt Date: 20120918
  Transmission Date: 20130627
  Serious: Yes (Hospitalization)
  Sender: FDA-Public Use
  Company Number: US-BAYER-2012-096615

PATIENT
  Age: 21 Year
  Sex: Female
  Weight: 78 kg

DRUGS (4)
  1. YAZ [Suspect]
     Dosage: UNK
  2. LEXAPRO [Concomitant]
     Dosage: 10 mg, daily
  3. LYRICA [Concomitant]
     Indication: FIBROMYALGIA
     Dosage: 50 mg, BID
  4. TYLENOL [Concomitant]

REACTIONS (1)
  - Vena cava thrombosis [None]
